FAERS Safety Report 16805555 (Version 1)
Quarter: 2019Q3

REPORT INFORMATION
  Report Type: Spontaneous
  Country: US (occurrence: US)
  Receive Date: 20190913
  Receipt Date: 20190913
  Transmission Date: 20191005
  Serious: Yes (Other)
  Sender: FDA-Public Use
  Company Number: US-BRISTOL-MYERS SQUIBB COMPANY-BMS-2019-087899

PATIENT
  Sex: Female
  Weight: 59.87 kg

DRUGS (1)
  1. ELIQUIS [Suspect]
     Active Substance: APIXABAN
     Indication: CARDIAC OPERATION
     Dosage: 2.5 MILLIGRAM, BID
     Route: 065
     Dates: start: 201711

REACTIONS (4)
  - Fall [Unknown]
  - Intentional product use issue [Unknown]
  - Haemorrhage [Unknown]
  - Product storage error [Unknown]
